FAERS Safety Report 18935752 (Version 3)
Quarter: 2021Q4

REPORT INFORMATION
  Report Type: Spontaneous
  Country: US (occurrence: US)
  Receive Date: 20210225
  Receipt Date: 20211029
  Transmission Date: 20220303
  Serious: Yes (Hospitalization, Other)
  Sender: FDA-Public Use
  Company Number: US-SA-SAC20210223000750

PATIENT
  Sex: Female

DRUGS (1)
  1. DUPIXENT [Suspect]
     Active Substance: DUPILUMAB
     Indication: Dermatitis atopic
     Dosage: 300 MG QOW
     Route: 058

REACTIONS (6)
  - Diabetes mellitus [Unknown]
  - Stress [Recovering/Resolving]
  - Decreased appetite [Recovered/Resolved]
  - Hospitalisation [Unknown]
  - Rash [Unknown]
  - Product dose omission issue [Unknown]
